FAERS Safety Report 10247869 (Version 1)
Quarter: 2014Q2

REPORT INFORMATION
  Report Type: Spontaneous
  Country: AU (occurrence: AU)
  Receive Date: 20140619
  Receipt Date: 20140619
  Transmission Date: 20141212
  Serious: Yes (Death)
  Sender: FDA-Public Use
  Company Number: AU-CELGENEUS-008-21880-14061316

PATIENT
  Sex: Female

DRUGS (2)
  1. REVLIMID [Suspect]
     Indication: 5Q MINUS SYNDROME
     Route: 048
  2. REVLIMID [Suspect]
     Route: 048

REACTIONS (3)
  - Death [Fatal]
  - Neutropenia [Unknown]
  - Thrombocytopenia [Unknown]
